FAERS Safety Report 14172079 (Version 1)
Quarter: 2017Q4

REPORT INFORMATION
  Report Type: Report from Study
  Country: DE (occurrence: DE)
  Receive Date: 20171108
  Receipt Date: 20171108
  Transmission Date: 20180321
  Serious: Yes (Other)
  Sender: FDA-Public Use
  Company Number: DE-ROCHE-677525

PATIENT

DRUGS (5)
  1. FLUOCORTOLONE [Concomitant]
     Active Substance: FLUOCORTOLONE
     Dosage: DOSAGE TAPERED
     Route: 065
  2. MYCOPHENOLATE MOFETIL. [Suspect]
     Active Substance: MYCOPHENOLATE MOFETIL
     Indication: PROPHYLAXIS AGAINST TRANSPLANT REJECTION
     Route: 048
  3. FLUOCORTOLONE [Concomitant]
     Active Substance: FLUOCORTOLONE
     Route: 065
  4. PREDNISOLONE ACETATE. [Concomitant]
     Active Substance: PREDNISOLONE ACETATE
     Dosage: EYE DROPS
     Route: 065
  5. PREDNISOLONE ACETATE. [Concomitant]
     Active Substance: PREDNISOLONE ACETATE
     Dosage: DOSAGE TAPERED OVER 5 MONTHS
     Route: 065

REACTIONS (5)
  - Renal cancer [Unknown]
  - Agranulocytosis [Unknown]
  - Infection [Recovered/Resolved]
  - Hepatotoxicity [Unknown]
  - Myocardial infarction [Unknown]
